FAERS Safety Report 9057353 (Version 1)
Quarter: 2013Q1

REPORT INFORMATION
  Report Type: Spontaneous
  Country: TR (occurrence: TR)
  Receive Date: 20130204
  Receipt Date: 20130204
  Transmission Date: 20140127
  Serious: Yes (Hospitalization)
  Sender: FDA-Public Use
  Company Number: PHHY2013TR008822

PATIENT
  Sex: Female

DRUGS (2)
  1. RISPERIDONE [Suspect]
     Dosage: 6 MG, UNK
  2. RISPERIDONE [Suspect]
     Dosage: 2 MG, UNK

REACTIONS (12)
  - Pituitary tumour benign [Recovering/Resolving]
  - Left ventricular dysfunction [Recovering/Resolving]
  - Local swelling [Recovering/Resolving]
  - Amenorrhoea [Recovering/Resolving]
  - Weight increased [Recovering/Resolving]
  - Dysphonia [Recovering/Resolving]
  - Paranoia [Recovering/Resolving]
  - Insomnia [Recovering/Resolving]
  - Hemianopia heteronymous [Recovering/Resolving]
  - Acromegaly [Recovering/Resolving]
  - Persecutory delusion [Recovering/Resolving]
  - Blood growth hormone increased [Recovering/Resolving]
